FAERS Safety Report 9710631 (Version 1)
Quarter: 2013Q4

REPORT INFORMATION
  Report Type: Spontaneous
  Country: US (occurrence: US)
  Receive Date: 20131126
  Receipt Date: 20131126
  Transmission Date: 20140711
  Serious: No
  Sender: FDA-Public Use
  Company Number: US-BRISTOL-MYERS SQUIBB COMPANY-18998930

PATIENT
  Age: 56 Year
  Sex: Female
  Weight: 81.63 kg

DRUGS (7)
  1. BYDUREON [Suspect]
     Indication: DIABETES MELLITUS
     Dosage: THERAPY DURATION:3 DAYS
     Route: 058
     Dates: start: 20130605
  2. BYETTA [Suspect]
     Dosage: DOSE INCREASED TO 10MCG BID
     Dates: start: 2007, end: 20130604
  3. METFORMIN HCL [Suspect]
  4. AVALIDE [Concomitant]
  5. LIPITOR [Concomitant]
  6. SYNTHROID [Concomitant]
  7. CALCIUM [Concomitant]

REACTIONS (3)
  - Blood glucose decreased [Unknown]
  - Hunger [Not Recovered/Not Resolved]
  - Nausea [Unknown]
